FAERS Safety Report 7884081 (Version 2)
Quarter: 2015Q3

REPORT INFORMATION
  Report Type: Spontaneous
  Country: DE (occurrence: DE)
  Receive Date: 20110404
  Receipt Date: 20150723
  Transmission Date: 20151125
  Serious: Yes (Other)
  Sender: FDA-Public Use
  Company Number: DE-AMGEN-DEUCT2011015639

PATIENT

DRUGS (1)
  1. CINACALCET HCL [Suspect]
     Active Substance: CINACALCET HYDROCHLORIDE
     Indication: HYPERCALCAEMIA
     Dosage: UNK
     Route: 065
     Dates: start: 200506, end: 200509

REACTIONS (2)
  - Renal impairment [Recovered/Resolved]
  - Gastrointestinal disorder [Unknown]

NARRATIVE: CASE EVENT DATE: 200509
